FAERS Safety Report 15548925 (Version 1)
Quarter: 2018Q4

REPORT INFORMATION
  Report Type: Report from Study
  Country: CA (occurrence: CA)
  Receive Date: 20181025
  Receipt Date: 20181025
  Transmission Date: 20190205
  Serious: Yes (Other)
  Sender: FDA-Public Use
  Company Number: CA-TAKEDA-2018TUS003586

PATIENT
  Age: 37 Year
  Sex: Female
  Weight: 53 kg

DRUGS (3)
  1. TYLENOL [Concomitant]
     Active Substance: ACETAMINOPHEN
     Dosage: UNK
  2. SALOFALK                           /00000301/ [Concomitant]
     Active Substance: MESALAMINE
     Dosage: 2000 MG, BID
     Dates: start: 20141001
  3. VEDOLIZUMAB [Suspect]
     Active Substance: VEDOLIZUMAB
     Indication: COLITIS ULCERATIVE
     Dosage: 300 MG, UNK
     Route: 042
     Dates: start: 20151224

REACTIONS (4)
  - Blood pressure increased [Unknown]
  - Pregnancy [Recovered/Resolved]
  - Exposure via breast milk [Unknown]
  - Stillbirth [Unknown]

NARRATIVE: CASE EVENT DATE: 2018
